FAERS Safety Report 5909459-1 (Version None)
Quarter: 2008Q4

REPORT INFORMATION
  Report Type: 
  Country: None (occurrence: None)
  Receive Date: 20081006
  Receipt Date: 20080926
  Transmission Date: 20090506
  Serious: Yes (Other)
  Sender: FDA-Public Use
  Company Number: US-PFIZER INC-2008082016

PATIENT
  Sex: Female

DRUGS (2)
  1. CADUET [Suspect]
     Dates: start: 20050101
  2. LIPITOR [Suspect]

REACTIONS (3)
  - ABDOMINAL PAIN [None]
  - HEPATIC STEATOSIS [None]
  - HEPATOMEGALY [None]
